FAERS Safety Report 8178000-8 (Version None)
Quarter: 2012Q1

REPORT INFORMATION
  Report Type: 
  Country: None (occurrence: None)
  Receive Date: 20120301
  Receipt Date: 20120223
  Transmission Date: 20120608
  Serious: Yes (Death, Hospitalization, Other)
  Sender: FDA-Public Use
  Company Number: US-CELGENEUS-163-21880-11121163

PATIENT
  Sex: Female
  Weight: 61.29 kg

DRUGS (27)
  1. ATIVAN [Concomitant]
     Route: 065
  2. TEKTURNA [Concomitant]
     Dosage: 300 MILLIGRAM
     Route: 065
  3. VESICARE [Concomitant]
     Dosage: 5 MILLIGRAM
     Route: 065
  4. LANTUS [Concomitant]
     Dosage: 39 UNITS
     Route: 065
  5. ROCEPHIN [Concomitant]
     Dosage: 1 GRAM
     Route: 041
     Dates: start: 20111201
  6. INSULIN [Concomitant]
     Route: 065
  7. VOLTAREN [Concomitant]
     Route: 065
  8. REVLIMID [Suspect]
     Indication: MULTIPLE MYELOMA
     Dosage: 10 MILLIGRAM
     Route: 048
     Dates: start: 20111112, end: 20111127
  9. LORAZEPAM [Concomitant]
     Route: 065
  10. LAXATIVE [Concomitant]
     Route: 065
  11. FOLIC ACID [Concomitant]
     Dosage: 800 MICROGRAM
     Route: 065
  12. NORVASC [Concomitant]
     Dosage: 10 MILLIGRAM
     Route: 065
  13. HYDROCHLOROTHIAZIDE [Concomitant]
     Dosage: 25
     Route: 065
  14. NITROSTAT [Concomitant]
     Route: 065
  15. VALSARTAN [Concomitant]
     Route: 065
  16. DIOVAN [Concomitant]
     Dosage: 320 MILLIGRAM
     Route: 065
  17. TRAMADOL HCL [Concomitant]
     Route: 065
  18. AMLODIPINE [Concomitant]
     Route: 065
  19. ROSUVASTATIN [Concomitant]
     Route: 065
  20. LOVAZA [Concomitant]
     Route: 065
  21. ASPIRIN [Concomitant]
     Dosage: 81 MILLIGRAM
     Route: 065
  22. PROCRIT [Concomitant]
     Route: 065
  23. VITAMIN D [Concomitant]
     Dosage: 1000 IU (INTERNATIONAL UNIT)
     Route: 065
  24. CRESTOR [Concomitant]
     Dosage: 10 MILLIGRAM
     Route: 065
  25. NOVOLOG [Concomitant]
     Dosage: 3-9 UNITS
     Route: 065
  26. LOVAZA [Concomitant]
     Dosage: 2 GRAM
     Route: 065
  27. MAGNESIUM WITH ZINC [Concomitant]
     Route: 065

REACTIONS (4)
  - MULTIPLE MYELOMA [None]
  - RIB FRACTURE [None]
  - HIP FRACTURE [None]
  - PANCYTOPENIA [None]
